FAERS Safety Report 16900444 (Version 1)
Quarter: 2019Q4

REPORT INFORMATION
  Report Type: Spontaneous
  Country: US (occurrence: US)
  Receive Date: 20190816
  Receipt Date: 20190816
  Transmission Date: 20200122
  Serious: Yes (Hospitalization)
  Sender: FDA-Public Use
  Company Number: None

PATIENT
  Age: 60 Year
  Sex: Female
  Weight: 57.3 kg

DRUGS (1)
  1. YESCARTA [Suspect]
     Active Substance: AXICABTAGENE CILOLEUCEL
     Indication: LYMPHOMA
     Dosage: ?          OTHER DOSE:2X10^8 CELLS;?
     Route: 042
     Dates: start: 201905

REACTIONS (18)
  - Neurotoxicity [None]
  - Deep vein thrombosis [None]
  - Ejection fraction decreased [None]
  - Sepsis [None]
  - Gastric fistula [None]
  - Complication associated with device [None]
  - Cardiomyopathy [None]
  - Atrial fibrillation [None]
  - Aspiration [None]
  - Pulmonary oedema [None]
  - Streptococcal infection [None]
  - Cytokine release syndrome [None]
  - CAR T-cell-related encephalopathy syndrome [None]
  - Delirium [None]
  - Fluid overload [None]
  - Respiratory failure [None]
  - Hypertensive emergency [None]
  - Blood culture positive [None]

NARRATIVE: CASE EVENT DATE: 20190515
